FAERS Safety Report 16923718 (Version 1)
Quarter: 2019Q4

REPORT INFORMATION
  Report Type: Spontaneous
  Country: AT (occurrence: AT)
  Receive Date: 20191016
  Receipt Date: 20191016
  Transmission Date: 20200122
  Serious: Yes (Death, Other)
  Sender: FDA-Public Use
  Company Number: NVSC2019AT001949

PATIENT
  Age: 61 Year
  Sex: Male

DRUGS (1)
  1. REVOLADE [Suspect]
     Active Substance: ELTROMBOPAG
     Indication: APLASTIC ANAEMIA
     Dosage: 150 MG
     Route: 065

REACTIONS (5)
  - Graft versus host disease [Fatal]
  - Off label use [Unknown]
  - Skin disorder [Unknown]
  - Leukaemia [Unknown]
  - Testicular disorder [Unknown]
